FAERS Safety Report 6835751-2 (Version None)
Quarter: 2010Q3

REPORT INFORMATION
  Report Type: 
  Country: None (occurrence: None)
  Receive Date: 20100713
  Receipt Date: 20100630
  Transmission Date: 20110219
  Serious: Yes (Other)
  Sender: FDA-Public Use
  Company Number: US-PFIZER INC-2010065025

PATIENT
  Sex: Female
  Weight: 90.703 kg

DRUGS (1)
  1. TOVIAZ [Suspect]
     Indication: URINARY INCONTINENCE
     Dosage: 4 MG, DAILY
     Route: 048
     Dates: start: 20100408, end: 20100521

REACTIONS (7)
  - DYSKINESIA [None]
  - DYSPHONIA [None]
  - EYE BURNS [None]
  - HYPOAESTHESIA [None]
  - PRURITUS [None]
  - TONGUE DISORDER [None]
  - VISION BLURRED [None]
